FAERS Safety Report 7940092-6 (Version None)
Quarter: 2011Q4

REPORT INFORMATION
  Report Type: 
  Country: None (occurrence: None)
  Receive Date: 20111125
  Receipt Date: 20111121
  Transmission Date: 20120403
  Serious: Yes (Death, Other)
  Sender: FDA-Public Use
  Company Number: PHHO2011GB019556

PATIENT
  Sex: Male

DRUGS (1)
  1. DICLOFENAC SODIUM [Suspect]
     Indication: OSTEOARTHRITIS
     Dosage: UNK
     Dates: start: 20100512, end: 20111028

REACTIONS (3)
  - PERICARDIAL HAEMORRHAGE [None]
  - DYSPEPSIA [None]
  - MYOCARDIAL INFARCTION [None]
